FAERS Safety Report 23926782 (Version 2)
Quarter: 2024Q3

REPORT INFORMATION
  Report Type: Spontaneous
  Country: US (occurrence: US)
  Receive Date: 20240531
  Receipt Date: 20240828
  Transmission Date: 20241017
  Serious: Yes (Other)
  Sender: BRISTOL MYERS SQUIBB
  Company Number: US-BRISTOL-MYERS SQUIBB COMPANY-2024-084011

PATIENT
  Age: 70 Year
  Sex: Female

DRUGS (2)
  1. ORENCIA [Suspect]
     Active Substance: ABATACEPT
     Indication: Product used for unknown indication
     Dosage: INJECT 125MG (1 SYRINGE) SUBCUTANEOUSLY ONCE A WEEK.  (STORE IN REFRIGERATORIMMEDIATELY.)
     Route: 058
  2. HUMIRA [Suspect]
     Active Substance: ADALIMUMAB
     Indication: Product used for unknown indication

REACTIONS (4)
  - Pruritus [Unknown]
  - Contrast media allergy [Unknown]
  - Rash [Unknown]
  - Pneumonia [Unknown]

NARRATIVE: CASE EVENT DATE: 20240515
